FAERS Safety Report 8286888-5 (Version None)
Quarter: 2012Q2

REPORT INFORMATION
  Report Type: 
  Country: None (occurrence: None)
  Receive Date: 20120416
  Receipt Date: 20120406
  Transmission Date: 20120825
  Serious: Yes (Other)
  Sender: FDA-Public Use
  Company Number: US-BAYER-2012-034150

PATIENT
  Age: 29 Year
  Sex: Female

DRUGS (11)
  1. MOTRIN [Concomitant]
     Dosage: 800 MG, UNK
     Dates: start: 20090330
  2. MIDRIN [Concomitant]
     Dosage: UNK
     Dates: start: 20090330
  3. CHANTIX [Concomitant]
     Dosage: UNK
     Dates: start: 20090331
  4. BENZACLIN [Concomitant]
     Dosage: UNK
     Dates: start: 20090417
  5. ALLEGRA-D 12 HOUR [Concomitant]
     Dosage: UNK
     Dates: start: 20090417
  6. YASMIN [Suspect]
  7. AFRIN ALLERGY [Concomitant]
     Dosage: UNK
     Dates: start: 20090417
  8. FLONASE [Concomitant]
     Dosage: UNK
     Dates: start: 20090417
  9. KEFLEX [Concomitant]
     Dosage: UNK
     Dates: start: 20090417
  10. SPIRONOLACTONE [Concomitant]
  11. METFORMIN HCL [Concomitant]

REACTIONS (1)
  - THROMBOPHLEBITIS SUPERFICIAL [None]
